FAERS Safety Report 9627944 (Version 1)
Quarter: 2013Q4

REPORT INFORMATION
  Report Type: Spontaneous
  Country: US (occurrence: US)
  Receive Date: 20131016
  Receipt Date: 20131016
  Transmission Date: 20140711
  Serious: No
  Sender: FDA-Public Use
  Company Number: US-009507513-1309USA011271

PATIENT
  Sex: Male

DRUGS (4)
  1. COZAAR [Suspect]
     Dosage: 50 MG, QD
     Route: 048
  2. LANSOPRAZOLE [Concomitant]
  3. ZOCOR [Concomitant]
  4. ASPIRIN [Concomitant]

REACTIONS (1)
  - Iron deficiency anaemia [Not Recovered/Not Resolved]
